FAERS Safety Report 20169725 (Version 8)
Quarter: 2023Q1

REPORT INFORMATION
  Report Type: Spontaneous
  Country: GB (occurrence: GB)
  Receive Date: 20211210
  Receipt Date: 20230113
  Transmission Date: 20230417
  Serious: Yes (Other)
  Sender: FDA-Public Use
  Company Number: GB-TAKEDA-2021TUS030394

PATIENT
  Age: 24 Year
  Sex: Female

DRUGS (7)
  1. ENTYVIO [Suspect]
     Active Substance: VEDOLIZUMAB
     Indication: Colitis ulcerative
     Dosage: 300 MILLIGRAM
     Route: 042
  2. ENTYVIO [Suspect]
     Active Substance: VEDOLIZUMAB
     Indication: Crohn^s disease
     Dosage: 300 MILLIGRAM
     Route: 042
  3. ENTYVIO [Suspect]
     Active Substance: VEDOLIZUMAB
     Dosage: 300 MILLIGRAM
     Route: 042
  4. ENTYVIO [Suspect]
     Active Substance: VEDOLIZUMAB
     Dosage: 300 MILLIGRAM
     Route: 042
  5. ENTYVIO [Suspect]
     Active Substance: VEDOLIZUMAB
     Dosage: 300 MILLIGRAM
     Route: 042
  6. ENTYVIO [Suspect]
     Active Substance: VEDOLIZUMAB
     Dosage: 300 MILLIGRAM
     Route: 042
  7. ENTYVIO [Suspect]
     Active Substance: VEDOLIZUMAB
     Dosage: 300 MILLIGRAM
     Route: 042

REACTIONS (8)
  - Crohn^s disease [Not Recovered/Not Resolved]
  - Eyelid thickening [Not Recovered/Not Resolved]
  - COVID-19 [Unknown]
  - Weight decreased [Not Recovered/Not Resolved]
  - Diarrhoea [Not Recovered/Not Resolved]
  - Stress [Not Recovered/Not Resolved]
  - Treatment noncompliance [Recovered/Resolved]
  - Off label use [Recovered/Resolved]

NARRATIVE: CASE EVENT DATE: 20211206
